FAERS Safety Report 6102643-6 (Version None)
Quarter: 2009Q1

REPORT INFORMATION
  Report Type: 
  Country: None (occurrence: None)
  Receive Date: 20090304
  Receipt Date: 20081111
  Transmission Date: 20090719
  Serious: No
  Sender: FDA-Public Use
  Company Number: A0754601A

PATIENT
  Age: 43 Year
  Sex: Female

DRUGS (4)
  1. ROPINIROLE [Suspect]
     Indication: RESTLESS LEGS SYNDROME
     Dosage: .5MG PER DAY
     Route: 048
     Dates: start: 20081030
  2. MIRAPEX [Suspect]
  3. HORMONE REPLACEMENT [Concomitant]
  4. GLUCOPHAGE [Concomitant]

REACTIONS (6)
  - DYSKINESIA [None]
  - DYSURIA [None]
  - NAUSEA [None]
  - POOR QUALITY SLEEP [None]
  - RESTLESS LEGS SYNDROME [None]
  - SLUGGISHNESS [None]
